FAERS Safety Report 10875014 (Version 1)
Quarter: 2015Q1

REPORT INFORMATION
  Report Type: Report from Study
  Country: BR (occurrence: BR)
  Receive Date: 20150227
  Receipt Date: 20150227
  Transmission Date: 20150721
  Serious: Yes (Death, Other)
  Sender: FDA-Public Use
  Company Number: PHHY2015BR023743

PATIENT
  Sex: Male
  Weight: 50 kg

DRUGS (1)
  1. EXELON [Suspect]
     Active Substance: RIVASTIGMINE TARTRATE
     Indication: CEREBROVASCULAR ACCIDENT
     Dosage: 1 DF, BID (1 CAPSULE IN THE MORNING AND 1 CAPSULE AT NIGHT)
     Route: 065
     Dates: start: 201412

REACTIONS (2)
  - Infarction [Fatal]
  - Product use issue [Unknown]
